FAERS Safety Report 5144376-9 (Version None)
Quarter: 2006Q4

REPORT INFORMATION
  Report Type: 
  Country: None (occurrence: None)
  Receive Date: 20061030
  Receipt Date: 20061025
  Transmission Date: 20070319
  Serious: Yes (Hospitalization)
  Sender: FDA-Public Use
  Company Number: S06-USA-04170-01

PATIENT
  Age: 90 Year
  Sex: Female
  Weight: 67.586 kg

DRUGS (9)
  1. LEXAPRO [Suspect]
     Indication: DEPRESSION
     Dosage: 10 MG QD PO
     Route: 048
     Dates: start: 20060823
  2. DYAZIDE (TRIAMTERENE/HYDROCHLOROTHIAZIDE) [Concomitant]
  3. INDERAL [Concomitant]
  4. LIPITOR [Concomitant]
  5. PLAVIX [Concomitant]
  6. CLARINEX [Concomitant]
  7. ATENOLOL [Concomitant]
  8. LIDODERM PATCH [Concomitant]
  9. SONATA [Concomitant]

REACTIONS (1)
  - DYSARTHRIA [None]
